FAERS Safety Report 5885021-4 (Version None)
Quarter: 2008Q3

REPORT INFORMATION
  Report Type: 
  Country: None (occurrence: None)
  Receive Date: 20080915
  Receipt Date: 20080915
  Transmission Date: 20090109
  Serious: Yes (Other)
  Sender: FDA-Public Use
  Company Number: None

PATIENT
  Age: 29 Year
  Sex: Male
  Weight: 81.6475 kg

DRUGS (2)
  1. CELEXA [Suspect]
     Indication: DEPRESSION
     Dosage: CELEXA ONCE DAILY PO
     Route: 048
     Dates: start: 20000101, end: 20080913
  2. ABILIFY [Suspect]
     Indication: MANIA
     Dosage: ABILIFY ONCE DAILY PO
     Route: 048
     Dates: start: 20000101, end: 20080913

REACTIONS (2)
  - DIZZINESS [None]
  - HALLUCINATION [None]
